FAERS Safety Report 4859665-2 (Version None)
Quarter: 2005Q4

REPORT INFORMATION
  Report Type: 
  Country: None (occurrence: None)
  Receive Date: 20051215
  Receipt Date: 20051202
  Transmission Date: 20060501
  Serious: Yes (Other)
  Sender: FDA-Public Use
  Company Number: DSA_27373_2005

PATIENT
  Age: 67 Year
  Sex: Female

DRUGS (2)
  1. ENALAPRIL MALEATE [Suspect]
     Dosage: 5 MG Q DAY PO
     Route: 048
     Dates: start: 20050301, end: 20050921
  2. ZOCOR [Concomitant]

REACTIONS (1)
  - FACIAL PALSY [None]
